FAERS Safety Report 10877769 (Version 1)
Quarter: 2015Q1

REPORT INFORMATION
  Report Type: Spontaneous
  Country: US (occurrence: None)
  Receive Date: 20150224
  Receipt Date: 20150224
  Transmission Date: 20150721
  Serious: No
  Sender: FDA-Public Use
  Company Number: None

PATIENT
  Sex: Male

DRUGS (1)
  1. CLONAZEPAM. [Suspect]
     Active Substance: CLONAZEPAM

REACTIONS (6)
  - Wrong drug administered [None]
  - Product commingling [None]
  - Somnolence [None]
  - Drug dispensing error [None]
  - Mental status changes [None]
  - Gait disturbance [None]
